FAERS Safety Report 6604611-4 (Version None)
Quarter: 2010Q1

REPORT INFORMATION
  Report Type: 
  Country: None (occurrence: None)
  Receive Date: 20100226
  Receipt Date: 20091223
  Transmission Date: 20100710
  Serious: No
  Sender: FDA-Public Use
  Company Number: A0836717A

PATIENT
  Age: 53 Year
  Sex: Female

DRUGS (3)
  1. LAMOTRIGINE [Suspect]
     Indication: PARTIAL SEIZURES
     Dosage: 25MG PER DAY
     Route: 048
     Dates: start: 20091211
  2. BABY ASPIRIN [Concomitant]
  3. TRILEPTAL [Concomitant]

REACTIONS (9)
  - CHEST DISCOMFORT [None]
  - CHILLS [None]
  - FATIGUE [None]
  - GINGIVAL BLEEDING [None]
  - GINGIVAL SWELLING [None]
  - INSOMNIA [None]
  - MYALGIA [None]
  - OVERDOSE [None]
  - PYREXIA [None]
